FAERS Safety Report 25230276 (Version 1)
Quarter: 2025Q2

REPORT INFORMATION
  Report Type: Spontaneous
  Country: US (occurrence: US)
  Receive Date: 20250423
  Receipt Date: 20250423
  Transmission Date: 20250716
  Serious: Yes (Other)
  Sender: MYLAN
  Company Number: US-MYLANLABS-2025M1034547

PATIENT
  Age: 30 Year
  Sex: Female

DRUGS (4)
  1. DOXYCYCLINE [Suspect]
     Active Substance: DOXYCYCLINE
     Indication: Animal bite
  2. DOXYCYCLINE [Suspect]
     Active Substance: DOXYCYCLINE
     Route: 065
  3. DOXYCYCLINE [Suspect]
     Active Substance: DOXYCYCLINE
     Route: 065
  4. DOXYCYCLINE [Suspect]
     Active Substance: DOXYCYCLINE

REACTIONS (2)
  - Drug-induced liver injury [Recovered/Resolved]
  - Cholestatic liver injury [Recovered/Resolved]
